FAERS Safety Report 9668300 (Version 3)
Quarter: 2013Q4

REPORT INFORMATION
  Report Type: Spontaneous
  Country: US (occurrence: US)
  Receive Date: 20131104
  Receipt Date: 20131122
  Transmission Date: 20140711
  Serious: No
  Sender: FDA-Public Use
  Company Number: US-PFIZER INC-2013310619

PATIENT
  Age: 44 Year
  Sex: Male
  Weight: 86.17 kg

DRUGS (5)
  1. PRISTIQ [Suspect]
     Indication: DEPRESSION
     Dosage: 50MG DAILY AT NIGHT
     Dates: start: 2013, end: 20131029
  2. CLORAZEPATE [Suspect]
     Indication: ANXIETY
     Dosage: 3.75 MG IN MORNING AND 7.5 MG IN NIGHT, 2X/DAY
  3. GLYBURIDE/METFORMIN [Concomitant]
     Indication: DIABETES MELLITUS
     Dosage: GLIBURIDE 5 MG/ METFORMIN 500 MG, 2X/DAY
  4. SAPHRIS [Concomitant]
     Indication: DEPRESSION
     Dosage: 10 MG DAILY AT NIGHT
  5. LITHIUM [Concomitant]
     Indication: DEPRESSION
     Dosage: 450 MG, 2X/DAY

REACTIONS (8)
  - Hyperhidrosis [Not Recovered/Not Resolved]
  - Thinking abnormal [Not Recovered/Not Resolved]
  - Anxiety [Not Recovered/Not Resolved]
  - Balance disorder [Not Recovered/Not Resolved]
  - Feeling abnormal [Not Recovered/Not Resolved]
  - Discomfort [Not Recovered/Not Resolved]
  - Feeling hot [Not Recovered/Not Resolved]
  - Paraesthesia [Not Recovered/Not Resolved]
